FAERS Safety Report 10761157 (Version 1)
Quarter: 2015Q1

REPORT INFORMATION
  Report Type: Spontaneous
  Country: US (occurrence: US)
  Receive Date: 20150204
  Receipt Date: 20150204
  Transmission Date: 20150721
  Serious: No
  Sender: FDA-Public Use
  Company Number: US-PFIZER INC-2015039898

PATIENT
  Age: 39 Year

DRUGS (1)
  1. VIAGRA [Suspect]
     Active Substance: SILDENAFIL CITRATE
     Dosage: UNK
     Dates: start: 201408

REACTIONS (4)
  - Pre-existing condition improved [Unknown]
  - Analgesic therapy [Unknown]
  - Therapeutic response unexpected [Unknown]
  - Promotion of wound healing [Unknown]
